FAERS Safety Report 8388103-0 (Version None)
Quarter: 2012Q2

REPORT INFORMATION
  Report Type: 
  Country: None (occurrence: None)
  Receive Date: 20120525
  Receipt Date: 20120512
  Transmission Date: 20120825
  Serious: Yes (Other)
  Sender: FDA-Public Use
  Company Number: JP-JNJFOC-20120516804

PATIENT
  Age: 39 Year
  Sex: Male

DRUGS (9)
  1. NOVORAPID [Concomitant]
     Indication: DIABETES MELLITUS
     Route: 058
     Dates: end: 20111008
  2. ZOLPIDEM [Concomitant]
     Route: 048
     Dates: start: 20110922
  3. LANTUS [Concomitant]
     Route: 058
  4. GANATON [Concomitant]
     Route: 048
     Dates: start: 20110922
  5. INVEGA [Suspect]
     Indication: SCHIZOPHRENIA
     Route: 048
     Dates: start: 20111007, end: 20111008
  6. LEXOTAN [Concomitant]
     Route: 048
     Dates: start: 20110922
  7. ACYCLOVIR [Concomitant]
     Route: 041
  8. LANTUS [Concomitant]
     Indication: DIABETES MELLITUS
     Route: 058
     Dates: end: 20111008
  9. NOVORAPID [Concomitant]
     Route: 058

REACTIONS (1)
  - HYPOGLYCAEMIA [None]
